FAERS Safety Report 22129453 (Version 1)
Quarter: 2023Q1

REPORT INFORMATION
  Report Type: Spontaneous
  Country: RU (occurrence: RU)
  Receive Date: 20230323
  Receipt Date: 20230323
  Transmission Date: 20230417
  Serious: Yes (Other)
  Sender: FDA-Public Use
  Company Number: RU-UCBSA-2023013915

PATIENT
  Age: 4 Year
  Sex: Male

DRUGS (25)
  1. LEVETIRACETAM [Suspect]
     Active Substance: LEVETIRACETAM
     Indication: Seizure
     Dosage: UNK
  2. LEVETIRACETAM [Suspect]
     Active Substance: LEVETIRACETAM
     Dosage: 40 MILLIGRAM/KILOGRAM/DAY
  3. LACOSAMIDE [Suspect]
     Active Substance: LACOSAMIDE
     Indication: Seizure
     Dosage: 12 MILLIGRAM/KILOGRAM/DAY
  4. PHENOBARBITAL [Suspect]
     Active Substance: PHENOBARBITAL
     Indication: Seizure
     Dosage: 10?15 MG/KG/DAY
  5. VALPROIC ACID [Suspect]
     Active Substance: VALPROIC ACID
     Indication: Seizure
     Dosage: 10 MILLIGRAM/KILOGRAM BOLUS
  6. VALPROIC ACID [Suspect]
     Active Substance: VALPROIC ACID
     Dosage: 1 MILLIGRAM/KILOGRAM/DAY
  7. VALPROIC ACID [Suspect]
     Active Substance: VALPROIC ACID
     Dosage: 40 MILLIGRAM/KILOGRAM/DAY
  8. CLONAZEPAM [Suspect]
     Active Substance: CLONAZEPAM
     Indication: Seizure
     Dosage: 3 MILLIGRAM/DAY
  9. AZITHROMYCIN [Concomitant]
     Active Substance: AZITHROMYCIN
     Indication: Respiratory tract infection
     Dosage: 10 MILLIGRAM/KILOGRAM
  10. AZITHROMYCIN [Concomitant]
     Active Substance: AZITHROMYCIN
     Indication: Rash
  11. INTERFERON ALFA-2B [Concomitant]
     Active Substance: INTERFERON ALFA-2B
     Indication: Respiratory tract infection
     Dosage: UNK
  12. INTERFERON ALFA-2B [Concomitant]
     Active Substance: INTERFERON ALFA-2B
     Indication: Rash
  13. INTERFERON ALFA-2B [Concomitant]
     Active Substance: INTERFERON ALFA-2B
     Indication: Respiratory tract infection
     Dosage: 150000 INTERNATIONAL UNIT, 2X/DAY (BID)
     Route: 054
  14. INTERFERON ALFA-2B [Concomitant]
     Active Substance: INTERFERON ALFA-2B
     Indication: Rash
  15. DIAZEPAM [Concomitant]
     Active Substance: DIAZEPAM
     Indication: Seizure
     Dosage: UNK
     Route: 042
  16. THIOPENTAL SODIUM [Concomitant]
     Active Substance: THIOPENTAL SODIUM
     Indication: Sedation
     Dosage: UNK
  17. ACYCLOVIR [Concomitant]
     Active Substance: ACYCLOVIR
     Indication: Herpes virus infection
     Dosage: 30 MILLIGRAM/KILOGRAM, ONCE DAILY (QD)
  18. CEFTRIAXONE [Concomitant]
     Active Substance: CEFTRIAXONE
     Indication: Respiratory tract infection
     Dosage: 100 MILLIGRAM/KILOGRAM/DAY
  19. DEXAMETHASONE [Concomitant]
     Active Substance: DEXAMETHASONE
     Indication: Respiratory tract infection
     Dosage: 1 MILLIGRAM/KILOGRAM/DAY
  20. GANCICLOVIR [Concomitant]
     Active Substance: GANCICLOVIR
     Indication: Herpes virus infection
     Dosage: 10 MG/KG/DAY, 14 DAYS
  21. METHYLPREDNISOLONE [Concomitant]
     Active Substance: METHYLPREDNISOLONE
     Indication: Herpes virus infection
     Dosage: 10 MG/KG/DAY, 5 DAYS
  22. HUMAN IMMUNOGLOBULIN NORMAL [Concomitant]
     Indication: Product used for unknown indication
     Dosage: 2 G/KG/COURSE
     Route: 042
  23. VITAMIN B [Concomitant]
     Active Substance: VITAMIN B
     Indication: Herpes virus infection
     Dosage: UNK
  24. CYTOFLAVIN [Concomitant]
     Indication: Seizure
     Dosage: 10 MILLILITRE PER KILOGRAM/DAY
  25. CYTOFLAVIN [Concomitant]
     Dosage: 10 ML/DAY
     Route: 041

REACTIONS (4)
  - Epilepsy [Unknown]
  - Intellectual disability [Unknown]
  - Cognitive disorder [Unknown]
  - Multiple-drug resistance [Unknown]
